FAERS Safety Report 10919475 (Version 2)
Quarter: 2015Q2

REPORT INFORMATION
  Report Type: Spontaneous
  Country: US (occurrence: US)
  Receive Date: 20150316
  Receipt Date: 20150407
  Transmission Date: 20150821
  Serious: Yes (Other)
  Sender: FDA-Public Use
  Company Number: US-SA-2015SA031060

PATIENT

DRUGS (6)
  1. TAMBOCOR [Concomitant]
     Active Substance: FLECAINIDE ACETATE
     Dosage: 160
  2. ASPIRIN. [Concomitant]
     Active Substance: ASPIRIN
     Dosage: 81
  3. PLAVIX [Suspect]
     Active Substance: CLOPIDOGREL BISULFATE
     Indication: CORONARY ARTERIAL STENT INSERTION
     Route: 065
     Dates: start: 20150216, end: 20150311
  4. LIPITOR [Concomitant]
     Active Substance: ATORVASTATIN CALCIUM
     Dosage: 40
  5. PROTONIX [Concomitant]
     Active Substance: PANTOPRAZOLE SODIUM
     Dosage: 40
  6. LASIX [Concomitant]
     Active Substance: FUROSEMIDE
     Dosage: 20

REACTIONS (4)
  - Cutaneous vasculitis [Recovered/Resolved]
  - Ill-defined disorder [Unknown]
  - Blood disorder [Unknown]
  - Inflammation [Unknown]

NARRATIVE: CASE EVENT DATE: 20150305
